FAERS Safety Report 5621867-5 (Version None)
Quarter: 2008Q1

REPORT INFORMATION
  Report Type: 
  Country: None (occurrence: None)
  Receive Date: 20080211
  Receipt Date: 20071121
  Transmission Date: 20080703
  Serious: No
  Sender: FDA-Public Use
  Company Number: US-BRISTOL-MYERS SQUIBB COMPANY-13995097

PATIENT
  Sex: Female

DRUGS (1)
  1. IXEMPRA FOR INJ [Suspect]
     Route: 042

REACTIONS (2)
  - ERYTHEMA [None]
  - HYPOAESTHESIA [None]
